FAERS Safety Report 4811069-4 (Version None)
Quarter: 2005Q4

REPORT INFORMATION
  Report Type: 
  Country: None (occurrence: None)
  Receive Date: 20051025
  Receipt Date: 20051013
  Transmission Date: 20060501
  Serious: Yes (Hospitalization)
  Sender: FDA-Public Use
  Company Number: 2005-09-1341

PATIENT
  Age: 57 Year
  Sex: Male
  Weight: 63.5036 kg

DRUGS (4)
  1. TEMODAR [Suspect]
     Indication: GLIOBLASTOMA MULTIFORME
     Dosage: 75MG/M^2 QD ORAL
     Route: 048
     Dates: start: 20050811, end: 20051001
  2. RADIATION THERAPY [Concomitant]
  3. X-RAY THERAPY [Concomitant]
  4. DECADRON SRC [Concomitant]

REACTIONS (5)
  - DEHYDRATION [None]
  - EATING DISORDER [None]
  - MUCOSAL INFLAMMATION [None]
  - NEUTROPENIA [None]
  - PAIN [None]
